FAERS Safety Report 13889463 (Version 1)
Quarter: 2017Q3

REPORT INFORMATION
  Report Type: Spontaneous
  Country: US (occurrence: US)
  Receive Date: 20170822
  Receipt Date: 20170822
  Transmission Date: 20171127
  Serious: No
  Sender: FDA-Public Use
  Company Number: US-ROCHE-1254067

PATIENT
  Sex: Female

DRUGS (3)
  1. RITUXAN [Suspect]
     Active Substance: RITUXIMAB
     Indication: SCHNITZLER^S SYNDROME
     Route: 065
  2. ANAKINRA [Concomitant]
     Active Substance: ANAKINRA
  3. ACTEMRA [Suspect]
     Active Substance: TOCILIZUMAB
     Indication: SCHNITZLER^S SYNDROME
     Route: 065

REACTIONS (6)
  - White blood cell count decreased [Unknown]
  - Headache [Unknown]
  - Drug ineffective [Unknown]
  - Fatigue [Unknown]
  - Hepatic enzyme increased [Unknown]
  - Adverse drug reaction [Unknown]
